FAERS Safety Report 4290721-6 (Version None)
Quarter: 2004Q1

REPORT INFORMATION
  Report Type: 
  Country: None (occurrence: None)
  Receive Date: 20040209
  Receipt Date: 20040129
  Transmission Date: 20041129
  Serious: Yes (Life-Threatening, Hospitalization, Other)
  Sender: FDA-Public Use
  Company Number: 2004006537

PATIENT
  Age: 74 Year
  Sex: Female
  Weight: 81 kg

DRUGS (14)
  1. SORTIS (ATORVASTATIN) [Suspect]
     Indication: PROPHYLAXIS
     Dosage: 10 MG (DAILY), ORAL
     Route: 048
     Dates: start: 20030801
  2. PREDNISOLONE [Concomitant]
  3. CALAMINE/CAMPHOR/-DIPHENHYDRAMINE (DIPHENHYDRAMINE, CAMPHOR, CALAMINE) [Concomitant]
  4. FORMOTEROL (FORMOTEROL) [Concomitant]
  5. ALL OTHER THERAPEUTIC PRODUCTS [Concomitant]
  6. SALBUTAMOL (SALBUTAMOL) [Concomitant]
  7. MORPHINE SULFATE [Concomitant]
  8. ALENDRONATE SODIUM [Concomitant]
  9. TORSEMIDE [Concomitant]
  10. ALL OTHER THERAPEUTIC PRODUCTS [Concomitant]
  11. THEOPHYLLINE [Concomitant]
  12. TRIMIPRAMINE MALEATE (TRIMIPRAMINE MALEATE) [Concomitant]
  13. ENALAPRIL MALEATE [Concomitant]
  14. ALL OTHER THERAPEUTIC PRODUCTS [Concomitant]

REACTIONS (11)
  - CHRONIC OBSTRUCTIVE AIRWAYS DISEASE EXACERBATED [None]
  - CORONARY ARTERY DISEASE [None]
  - EMPHYSEMA [None]
  - GENERAL PHYSICAL HEALTH DETERIORATION [None]
  - HYPERTENSION [None]
  - LUNG NEOPLASM [None]
  - MELAENA [None]
  - OEDEMA PERIPHERAL [None]
  - OESOPHAGEAL ULCER HAEMORRHAGE [None]
  - RENAL FAILURE [None]
  - RHABDOMYOLYSIS [None]
